FAERS Safety Report 20889164 (Version 1)
Quarter: 2022Q2

REPORT INFORMATION
  Report Type: Spontaneous
  Country: US (occurrence: US)
  Receive Date: 20220530
  Receipt Date: 20220530
  Transmission Date: 20220720
  Serious: No
  Sender: FDA-Public Use
  Company Number: US-drreddys-SPO/USA/22/0150218

PATIENT
  Age: 21 Year

DRUGS (1)
  1. ACCUTANE [Suspect]
     Active Substance: ISOTRETINOIN
     Indication: Acne
     Dosage: RMA ISSUE DATE 29 APRIL 2022 05:23:10 PM, 25 MARCH 2022 03:44:15 PM, 25 FEBRUARY 2022 03:17:30 PM, 2
     Route: 065

REACTIONS (1)
  - Treatment noncompliance [Unknown]
